FAERS Safety Report 8444484-0 (Version None)
Quarter: 2012Q2

REPORT INFORMATION
  Report Type: 
  Country: None (occurrence: None)
  Receive Date: 20120618
  Receipt Date: 20120612
  Transmission Date: 20120825
  Serious: Yes (Other)
  Sender: FDA-Public Use
  Company Number: US-PFIZER INC-2012142385

PATIENT
  Sex: Female
  Weight: 45.805 kg

DRUGS (4)
  1. LEVOXYL [Suspect]
     Indication: HYPOTHYROIDISM
     Dosage: 100 UG, 1X/DAY
     Dates: start: 20120101, end: 20120101
  2. SYNTHROID [Suspect]
     Indication: HYPOTHYROIDISM
     Dosage: 100 UG, 1X/DAY
     Dates: end: 20120101
  3. ATENOLOL [Concomitant]
     Dosage: SPLITTING 25MG, DAILY
     Route: 048
  4. LEVOTHYROXINE SODIUM [Suspect]
     Indication: HYPOTHYROIDISM
     Dosage: 100 UG, 1X/DAY
     Dates: start: 20120101

REACTIONS (4)
  - VITAMIN B12 DECREASED [None]
  - AUTOIMMUNE DISORDER [None]
  - BLOOD CHOLESTEROL INCREASED [None]
  - VITAMIN D DECREASED [None]
